FAERS Safety Report 18706742 (Version 3)
Quarter: 2021Q1

REPORT INFORMATION
  Report Type: Report from Study
  Country: US (occurrence: US)
  Receive Date: 20210106
  Receipt Date: 20210227
  Transmission Date: 20210419
  Serious: Yes (Other)
  Sender: FDA-Public Use
  Company Number: US-JNJFOC-20201231054

PATIENT
  Sex: Female

DRUGS (3)
  1. STELARA [Suspect]
     Active Substance: USTEKINUMAB
     Indication: CROHN^S DISEASE
     Route: 042
     Dates: start: 20201111
  2. STELARA [Suspect]
     Active Substance: USTEKINUMAB
     Indication: CROHN^S DISEASE
     Route: 058
     Dates: start: 20210114
  3. STELARA [Suspect]
     Active Substance: USTEKINUMAB

REACTIONS (8)
  - Lethargy [Unknown]
  - Headache [Unknown]
  - Splenomegaly [Unknown]
  - Nausea [Not Recovered/Not Resolved]
  - Genital infection female [Unknown]
  - Somnolence [Not Recovered/Not Resolved]
  - Chills [Unknown]
  - Large intestinal stenosis [Unknown]
